FAERS Safety Report 12839236 (Version 1)
Quarter: 2016Q4

REPORT INFORMATION
  Report Type: Spontaneous
  Country: US (occurrence: US)
  Receive Date: 20161012
  Receipt Date: 20161012
  Transmission Date: 20170207
  Serious: No
  Sender: FDA-Public Use
  Company Number: US-PFIZER INC-2016470365

PATIENT

DRUGS (1)
  1. NORVASC [Suspect]
     Active Substance: AMLODIPINE BESYLATE
     Dosage: 10 MG, UNK

REACTIONS (7)
  - Malaise [Unknown]
  - Dizziness [Unknown]
  - Drug intolerance [Unknown]
  - Vomiting [Unknown]
  - Activities of daily living impaired [Unknown]
  - Headache [Unknown]
  - Nausea [Unknown]
